FAERS Safety Report 6249291-5 (Version None)
Quarter: 2009Q2

REPORT INFORMATION
  Report Type: 
  Country: None (occurrence: None)
  Receive Date: 20090624
  Receipt Date: 20090624
  Transmission Date: 20091009
  Serious: Yes (Other)
  Sender: FDA-Public Use
  Company Number: None

PATIENT
  Age: 63 Year
  Sex: Female
  Weight: 70.3075 kg

DRUGS (1)
  1. ALENDRONATE SODIUM [Suspect]
     Indication: RESORPTION BONE INCREASED
     Dosage: ONE TABLET 1XWEEK PO
     Route: 048
     Dates: start: 20080615, end: 20090603

REACTIONS (10)
  - ARTHRALGIA [None]
  - BONE PAIN [None]
  - DRUG DOSE OMISSION [None]
  - JOINT STIFFNESS [None]
  - MIDDLE INSOMNIA [None]
  - MUSCLE SPASMS [None]
  - MYALGIA [None]
  - OEDEMA PERIPHERAL [None]
  - PAIN IN EXTREMITY [None]
  - POLYARTHRITIS [None]
